FAERS Safety Report 6833304-3 (Version None)
Quarter: 2010Q3

REPORT INFORMATION
  Report Type: 
  Country: None (occurrence: None)
  Receive Date: 20100712
  Receipt Date: 20100608
  Transmission Date: 20110219
  Serious: No
  Sender: FDA-Public Use
  Company Number: US-BIOGENIDEC-2010BI019220

PATIENT
  Age: 50 Year
  Sex: Male

DRUGS (2)
  1. TYSABRI [Suspect]
     Indication: MULTIPLE SCLEROSIS
     Route: 042
     Dates: start: 20090910
  2. NEURONTIN [Concomitant]
     Indication: PAIN IN EXTREMITY

REACTIONS (3)
  - FATIGUE [None]
  - PAIN IN EXTREMITY [None]
  - PAIN OF SKIN [None]
